FAERS Safety Report 8264962-7 (Version None)
Quarter: 2012Q2

REPORT INFORMATION
  Report Type: 
  Country: None (occurrence: None)
  Receive Date: 20120404
  Receipt Date: 20120327
  Transmission Date: 20120825
  Serious: Yes (Hospitalization, Other)
  Sender: FDA-Public Use
  Company Number: ADR-2012-00289

PATIENT
  Sex: Female

DRUGS (3)
  1. LIORESAL [Suspect]
     Indication: BRAIN INJURY
     Dosage: 1558.9MCG/DAY
     Route: 037
  2. LIORESAL [Suspect]
     Indication: MUSCLE SPASTICITY
     Dosage: 1558.9MCG/DAY
     Route: 037
  3. LIORESAL [Suspect]
     Indication: HEAD INJURY
     Dosage: 1558.9MCG/DAY
     Route: 037

REACTIONS (18)
  - FEELING ABNORMAL [None]
  - DEVICE INFUSION ISSUE [None]
  - DEVICE FAILURE [None]
  - VOMITING [None]
  - CONFUSIONAL STATE [None]
  - HALLUCINATION, VISUAL [None]
  - CRYING [None]
  - DISORIENTATION [None]
  - INCORRECT DOSE ADMINISTERED [None]
  - DRUG WITHDRAWAL CONVULSIONS [None]
  - FEELING JITTERY [None]
  - PRURITUS [None]
  - AGGRESSION [None]
  - IRRITABILITY [None]
  - FALL [None]
  - MEMORY IMPAIRMENT [None]
  - BALANCE DISORDER [None]
  - INSOMNIA [None]
